FAERS Safety Report 11627735 (Version 1)
Quarter: 2015Q4

REPORT INFORMATION
  Report Type: Report from Study
  Country: JP (occurrence: JP)
  Receive Date: 20151014
  Receipt Date: 20151014
  Transmission Date: 20160304
  Serious: Yes (Other)
  Sender: FDA-Public Use
  Company Number: JP-UCBSA-2015032613

PATIENT
  Age: 65 Year
  Sex: Male

DRUGS (8)
  1. ROTIGOTINE [Suspect]
     Active Substance: ROTIGOTINE
     Dosage: 4 MG, ONCE DAILY (QD)
     Route: 062
     Dates: start: 20150415, end: 20150503
  2. LANDSEN [Concomitant]
     Active Substance: CLONAZEPAM
     Indication: PRODUCT USED FOR UNKNOWN INDICATION
     Dosage: UNK
  3. NEODOPASTON [Concomitant]
     Active Substance: CARBIDOPA\LEVODOPA
     Indication: PARKINSON^S DISEASE
     Dosage: UNK
  4. BESOFTEN [Concomitant]
     Active Substance: SODIUM ALGINATE
     Indication: PRODUCT USED FOR UNKNOWN INDICATION
     Dosage: UNK
     Dates: start: 20150131, end: 20150503
  5. ROTIGOTINE [Suspect]
     Active Substance: ROTIGOTINE
     Indication: PARKINSON^S DISEASE
     Dosage: 2 MG, ONCE DAILY (QD)
     Route: 062
     Dates: start: 20150131, end: 20150414
  6. TRERIEF [Concomitant]
     Active Substance: ZONISAMIDE
     Indication: PARKINSON^S DISEASE
     Dosage: UNK
  7. AMANTADINE HYDROCHLORIDE. [Concomitant]
     Active Substance: AMANTADINE HYDROCHLORIDE
     Indication: PARKINSON^S DISEASE
     Dosage: UNK
  8. GASMOTIN [Concomitant]
     Active Substance: MOSAPRIDE CITRATE
     Indication: PRODUCT USED FOR UNKNOWN INDICATION
     Dosage: UNK

REACTIONS (3)
  - Laceration [Unknown]
  - Hallucination [Recovered/Resolved]
  - Agitation [Unknown]

NARRATIVE: CASE EVENT DATE: 20150502
